FAERS Safety Report 8619395-8 (Version None)
Quarter: 2012Q3

REPORT INFORMATION
  Report Type: 
  Country: None (occurrence: None)
  Receive Date: 20120824
  Receipt Date: 20120817
  Transmission Date: 20120928
  Serious: Yes (Hospitalization)
  Sender: FDA-Public Use
  Company Number: US-UCBSA-063881

PATIENT
  Age: 38 Year
  Sex: Female

DRUGS (2)
  1. KEPPRA [Suspect]
     Indication: PROPHYLAXIS
     Route: 048
     Dates: start: 20110902, end: 20111116
  2. LAMICTAL [Concomitant]
     Indication: PROPHYLAXIS
     Route: 048
     Dates: start: 20111101, end: 20111116

REACTIONS (3)
  - SUICIDAL IDEATION [None]
  - DEPRESSION [None]
  - HOMICIDAL IDEATION [None]
